FAERS Safety Report 9979567 (Version 2)
Quarter: 2014Q1

REPORT INFORMATION
  Report Type: Report from Study
  Country: US (occurrence: US)
  Receive Date: 20140306
  Receipt Date: 20140306
  Transmission Date: 20141002
  Serious: Yes (Hospitalization)
  Sender: FDA-Public Use
  Company Number: US-ABBVIE-13P-163-1145508-00

PATIENT
  Age: 58 Year
  Sex: Female
  Weight: 57.2 kg

DRUGS (5)
  1. HUMIRA [Suspect]
     Indication: COLITIS ULCERATIVE
     Dosage: LOADING DOSE ONLY
     Dates: start: 20130802
  2. HUMIRA [Suspect]
     Dates: start: 20131023
  3. LIALDA [Concomitant]
     Indication: COLITIS ULCERATIVE
     Dosage: 4.8 GM DAILY
     Route: 048
  4. LEVOTHYROXINE [Concomitant]
     Indication: HYPOTHYROIDISM
     Dosage: DAILY
  5. 6-MP [Concomitant]
     Indication: COLITIS ULCERATIVE
     Route: 048
     Dates: start: 1996, end: 201202

REACTIONS (3)
  - Anal abscess [Recovering/Resolving]
  - Anal abscess [Recovering/Resolving]
  - Female genital tract fistula [Unknown]
